FAERS Safety Report 20868124 (Version 1)
Quarter: 2022Q2

REPORT INFORMATION
  Report Type: Spontaneous
  Country: US (occurrence: US)
  Receive Date: 20220524
  Receipt Date: 20220524
  Transmission Date: 20220721
  Serious: No
  Sender: FDA-Public Use
  Company Number: US-GALDERMA-US2022005768

PATIENT

DRUGS (9)
  1. PROACTIV MD ADAPALENE ACNE TREATMENT [Suspect]
     Active Substance: ADAPALENE
     Indication: Acne
     Dosage: 1 DOSAGE FORM, BID, MORNING AND NIGHT
     Route: 061
  2. PROACTIV MD ADAPALENE ACNE TREATMENT [Suspect]
     Active Substance: ADAPALENE
     Indication: Dry skin
  3. PROACTIV MD ADAPALENE ACNE TREATMENT [Suspect]
     Active Substance: ADAPALENE
     Indication: Skin burning sensation
  4. Proactiv MD Ultra Gentle Cleanser [Concomitant]
     Indication: Acne
     Dosage: 1 DOSAGE FORM, BID, MORNING AND NIGHT
     Route: 061
  5. Proactiv MD Ultra Gentle Cleanser [Concomitant]
     Indication: Dry skin
  6. Proactiv MD Ultra Gentle Cleanser [Concomitant]
     Indication: Skin burning sensation
  7. Proactiv MD Ultra Hydrating Moisturizer [Concomitant]
     Indication: Acne
     Dosage: 1 DOSAGE FORM, BID, MORNING AND NIGHT
     Route: 061
  8. Proactiv MD Ultra Hydrating Moisturizer [Concomitant]
     Indication: Dry skin
  9. Proactiv MD Ultra Hydrating Moisturizer [Concomitant]
     Indication: Skin burning sensation

REACTIONS (3)
  - Drug ineffective [Unknown]
  - Inappropriate schedule of product administration [Recovered/Resolved]
  - Overdose [Recovered/Resolved]
